FAERS Safety Report 17214599 (Version 1)
Quarter: 2019Q4

REPORT INFORMATION
  Report Type: Spontaneous
  Country: FR (occurrence: FR)
  Receive Date: 20191230
  Receipt Date: 20191230
  Transmission Date: 20200122
  Serious: Yes (Congenital Anomaly)
  Sender: FDA-Public Use
  Company Number: FR-MYLANLABS-2019M1129274

PATIENT
  Age: 19 Week
  Sex: Male

DRUGS (4)
  1. AMOXICILLIN. [Suspect]
     Active Substance: AMOXICILLIN
     Indication: INFLUENZA
     Dosage: 3 GRAM, QD
     Route: 064
     Dates: start: 20190322, end: 20190329
  2. ASPEGIC                            /00002701/ [Suspect]
     Active Substance: ASPIRIN
     Indication: INFLUENZA
     Dosage: 2 DOSAGE FORM, QD
     Route: 064
     Dates: start: 20190321, end: 20190322
  3. OROZAMUDOL 50 MG, COMPRIM? ORODISPERSIBLE [Suspect]
     Active Substance: TRAMADOL
     Indication: SINUSITIS
     Dosage: 2 DOSAGE FORM, QD
     Route: 064
     Dates: start: 201903, end: 201903
  4. TAMIFLU [Suspect]
     Active Substance: OSELTAMIVIR PHOSPHATE
     Indication: INFLUENZA
     Dosage: UNK
     Route: 064
     Dates: start: 20190320, end: 20190325

REACTIONS (3)
  - Foetal exposure during pregnancy [Recovered/Resolved]
  - Cleft lip and palate [Not Recovered/Not Resolved]
  - Congenital heart valve disorder [Not Recovered/Not Resolved]

NARRATIVE: CASE EVENT DATE: 20190519
